FAERS Safety Report 6167985-7 (Version None)
Quarter: 2009Q2

REPORT INFORMATION
  Report Type: 
  Country: None (occurrence: None)
  Receive Date: 20090423
  Receipt Date: 20090423
  Transmission Date: 20091009
  Serious: No
  Sender: FDA-Public Use
  Company Number: None

PATIENT
  Age: 27 Year
  Sex: Male
  Weight: 97.5234 kg

DRUGS (1)
  1. ZYRTEC [Suspect]
     Indication: MULTIPLE ALLERGIES
     Dosage: 1 10MG TABLET DAILY PO
     Route: 048

REACTIONS (3)
  - ABNORMAL DREAMS [None]
  - DISTURBANCE IN ATTENTION [None]
  - IRRITABILITY [None]
